FAERS Safety Report 15558370 (Version 1)
Quarter: 2018Q4

REPORT INFORMATION
  Report Type: Other
  Country: MM (occurrence: MM)
  Receive Date: 20181028
  Receipt Date: 20181028
  Transmission Date: 20190205
  Serious: Yes (Hospitalization)
  Sender: FDA-Public Use
  Company Number: MM-LEADING PHARMA, LLC-2058148

PATIENT
  Age: 70 Year
  Sex: Male

DRUGS (1)
  1. FUROSEMIDE. [Suspect]
     Active Substance: FUROSEMIDE
     Indication: RENAL FAILURE
     Route: 042

REACTIONS (1)
  - Intraocular pressure decreased [Recovered/Resolved]
